FAERS Safety Report 8557523-3 (Version None)
Quarter: 2012Q3

REPORT INFORMATION
  Report Type: 
  Country: None (occurrence: None)
  Receive Date: 20120801
  Receipt Date: 20120730
  Transmission Date: 20120928
  Serious: Yes (Death)
  Sender: FDA-Public Use
  Company Number: JP-PFIZER INC-2012143180

PATIENT
  Age: 42 Year
  Sex: Male

DRUGS (2)
  1. PHENOBARBITAL TAB [Concomitant]
  2. HALCION [Suspect]
     Dosage: 0.25 MG, 2X/DAY
     Route: 048
     Dates: start: 20120613

REACTIONS (2)
  - DEATH [None]
  - OVERDOSE [None]
